FAERS Safety Report 5091649-4 (Version None)
Quarter: 2006Q3

REPORT INFORMATION
  Report Type: 
  Country: None (occurrence: None)
  Receive Date: 20060824
  Receipt Date: 20060816
  Transmission Date: 20061208
  Serious: Yes (Hospitalization)
  Sender: FDA-Public Use
  Company Number: HQWYE558316AUG06

PATIENT
  Age: 28 Year
  Sex: Male

DRUGS (10)
  1. PANTOPRAZOLE SODIUM [Suspect]
     Indication: ABDOMINAL PAIN
     Dosage: 40 MG 1X PER 1 DAY; ORAL
     Route: 048
     Dates: start: 20050915, end: 20051208
  2. PANTOPRAZOLE SODIUM [Suspect]
     Indication: ABDOMINAL PAIN UPPER
     Dosage: 40 MG 1X PER 1 DAY; ORAL
     Route: 048
     Dates: start: 20050915, end: 20051208
  3. PANTOPRAZOLE SODIUM [Suspect]
     Indication: DYSKINESIA OESOPHAGEAL
     Dosage: 40 MG 1X PER 1 DAY; ORAL
     Route: 048
     Dates: start: 20050915, end: 20051208
  4. FUNGIZONE [Concomitant]
  5. PURINETHOL [Concomitant]
  6. PURINETHOL [Concomitant]
  7. MESALAMINE [Concomitant]
  8. PENTASA [Concomitant]
  9. IMURAN [Concomitant]
  10. CORTICOSTEROIDS [Concomitant]

REACTIONS (2)
  - DIARRHOEA [None]
  - OESOPHAGITIS ULCERATIVE [None]
